FAERS Safety Report 26107467 (Version 1)
Quarter: 2025Q4

REPORT INFORMATION
  Report Type: Spontaneous
  Country: US (occurrence: US)
  Receive Date: 20251201
  Receipt Date: 20251201
  Transmission Date: 20260117
  Serious: No
  Sender: DR REDDYS
  Company Number: None

PATIENT
  Age: 30 Year
  Sex: Female

DRUGS (8)
  1. RISPERIDONE [Suspect]
     Active Substance: RISPERIDONE
     Indication: Bipolar II disorder
     Dosage: ADJUNCTIVE
  2. RISPERIDONE [Suspect]
     Active Substance: RISPERIDONE
     Indication: Obsessive-compulsive disorder
  3. LAMOTRIGINE [Concomitant]
     Active Substance: LAMOTRIGINE
     Indication: Bipolar II disorder
  4. LAMOTRIGINE [Concomitant]
     Active Substance: LAMOTRIGINE
     Indication: Obsessive-compulsive disorder
  5. SERTRALINE [Concomitant]
     Active Substance: SERTRALINE HYDROCHLORIDE
     Indication: Bipolar II disorder
  6. SERTRALINE [Concomitant]
     Active Substance: SERTRALINE HYDROCHLORIDE
     Indication: Obsessive-compulsive disorder
  7. ZURANOLONE [Concomitant]
     Active Substance: ZURANOLONE
     Indication: Bipolar II disorder
  8. ZURANOLONE [Concomitant]
     Active Substance: ZURANOLONE
     Indication: Obsessive-compulsive disorder

REACTIONS (1)
  - Weight increased [Unknown]
